FAERS Safety Report 22636214 (Version 1)
Quarter: 2023Q2

REPORT INFORMATION
  Report Type: Spontaneous
  Country: US (occurrence: None)
  Receive Date: 20230621
  Receipt Date: 20230621
  Transmission Date: 20230722
  Serious: Yes (Death)
  Sender: FDA-Public Use
  Company Number: None

PATIENT
  Age: 89 Year
  Sex: Female

DRUGS (1)
  1. ARANESP [Suspect]
     Active Substance: DARBEPOETIN ALFA
     Dosage: OTHER STRENGTH : 100MCG/0.5ML;?
     Route: 058
     Dates: start: 20230503, end: 20230615

REACTIONS (1)
  - Death [None]

NARRATIVE: CASE EVENT DATE: 20230615
